FAERS Safety Report 13521745 (Version 1)
Quarter: 2017Q2

REPORT INFORMATION
  Report Type: Spontaneous
  Country: NO (occurrence: NO)
  Receive Date: 20170508
  Receipt Date: 20170508
  Transmission Date: 20170830
  Serious: Yes (Hospitalization)
  Sender: FDA-Public Use
  Company Number: NO-FERRINGPH-2017FE01584

PATIENT

DRUGS (4)
  1. KLEXANE [Concomitant]
     Active Substance: ENOXAPARIN
  2. MENOPUR [Suspect]
     Active Substance: FOLLITROPIN\LUTEINIZING HORMONE
     Indication: IN VITRO FERTILISATION
     Dosage: 300 IU, DAILY
     Route: 065
     Dates: end: 20170129
  3. MENOPUR [Suspect]
     Active Substance: FOLLITROPIN\LUTEINIZING HORMONE
     Dosage: 225 IU, DAILY
     Route: 065
  4. ORGALUTRAN [Concomitant]
     Active Substance: GANIRELIX ACETATE

REACTIONS (3)
  - Infection [Unknown]
  - Ovarian hyperstimulation syndrome [Unknown]
  - Drug ineffective [Unknown]
